FAERS Safety Report 7493464-0 (Version None)
Quarter: 2011Q2

REPORT INFORMATION
  Report Type: 
  Country: None (occurrence: None)
  Receive Date: 20110520
  Receipt Date: 20101230
  Transmission Date: 20111010
  Serious: Yes (Hospitalization, Other)
  Sender: FDA-Public Use
  Company Number: US-BAYER-201022421NA

PATIENT
  Sex: Female
  Weight: 58.957 kg

DRUGS (1)
  1. YASMIN [Suspect]
     Indication: PRODUCT USED FOR UNKNOWN INDICATION
     Route: 048
     Dates: start: 20061201, end: 20071201

REACTIONS (5)
  - GALLBLADDER DISORDER [None]
  - ABDOMINAL PAIN [None]
  - INFECTION [None]
  - CHOLELITHIASIS [None]
  - VOMITING [None]
